FAERS Safety Report 6473592-9 (Version None)
Quarter: 2009Q4

REPORT INFORMATION
  Report Type: 
  Country: None (occurrence: None)
  Receive Date: 20091204
  Receipt Date: 20090629
  Transmission Date: 20100525
  Serious: Yes (Hospitalization)
  Sender: FDA-Public Use
  Company Number: US-ELI_LILLY_AND_COMPANY-US200812003787

PATIENT
  Sex: Female
  Weight: 97.052 kg

DRUGS (4)
  1. FORTEO [Suspect]
     Indication: OSTEOPOROSIS
     Dosage: 20 UG, DAILY (1/D)
     Dates: start: 20080301
  2. IBUPROFEN [Concomitant]
     Indication: PAIN IN EXTREMITY
     Dosage: 400 MG, 3/D
     Dates: start: 20080101
  3. VYTORIN [Concomitant]
  4. ATENOLOL [Concomitant]

REACTIONS (5)
  - BACK PAIN [None]
  - NERVE COMPRESSION [None]
  - ROAD TRAFFIC ACCIDENT [None]
  - SPINAL COLUMN STENOSIS [None]
  - SPONDYLOLISTHESIS [None]
